FAERS Safety Report 9156713 (Version 1)
Quarter: 2013Q1

REPORT INFORMATION
  Report Type: Spontaneous
  Country: ES (occurrence: None)
  Receive Date: 20130206
  Receipt Date: 20130206
  Transmission Date: 20140127
  Serious: No
  Sender: FDA-Public Use
  Company Number: TPA2013A01182

PATIENT
  Age: 62 Year
  Sex: Male

DRUGS (2)
  1. ADENURIC (FEBUXOSTAT) [Suspect]
     Indication: TUMOUR LYSIS SYNDROME
     Route: 048
     Dates: start: 20130118
  2. ALLOPURINOL [Suspect]
     Indication: TUMOUR LYSIS SYNDROME
     Route: 048
     Dates: start: 20130118

REACTIONS (1)
  - Pneumonia [None]
